FAERS Safety Report 8836957 (Version 1)
Quarter: 2012Q4

REPORT INFORMATION
  Report Type: 
  Country: US (occurrence: US)
  Receive Date: 20121012
  Receipt Date: 20121012
  Transmission Date: 20130627
  Serious: No
  Sender: FDA-Public Use
  Company Number: US-B.I. PHARMACEUTICALS,INC./RIDGEFIELD-2012-BP-23942BP

PATIENT
  Sex: Female
  Weight: 66 kg

DRUGS (5)
  1. PRADAXA [Suspect]
     Indication: ATRIAL FIBRILLATION
     Dosage: 300 mg
     Route: 048
     Dates: start: 2012, end: 201208
  2. MICARDIS [Suspect]
     Indication: HYPERTENSION
     Dosage: 40 mg
     Route: 048
     Dates: start: 2011
  3. PROPRANOLOL [Concomitant]
     Indication: HYPERTENSION
     Dosage: 120 mg
     Route: 048
     Dates: start: 2010
  4. PROZAC [Concomitant]
     Indication: DEPRESSION
     Dosage: 20 mg
     Route: 048
  5. LORAZEPAM [Concomitant]
     Indication: INSOMNIA
     Dosage: 0.5 mg
     Route: 048

REACTIONS (6)
  - Hypoaesthesia [Not Recovered/Not Resolved]
  - Paraesthesia [Not Recovered/Not Resolved]
  - Blood cholesterol increased [Not Recovered/Not Resolved]
  - Deafness [Not Recovered/Not Resolved]
  - Micturition urgency [Not Recovered/Not Resolved]
  - Dysphonia [Not Recovered/Not Resolved]
